FAERS Safety Report 11813326 (Version 1)
Quarter: 2015Q4

REPORT INFORMATION
  Report Type: Spontaneous
  Country: US (occurrence: None)
  Receive Date: 20151208
  Receipt Date: 20151208
  Transmission Date: 20160305
  Serious: Yes (Other)
  Sender: FDA-Public Use
  Company Number: None

PATIENT
  Age: 40 Year
  Sex: Female
  Weight: 76.66 kg

DRUGS (2)
  1. LEVOTHYROXINE 100MCG [Suspect]
     Active Substance: LEVOTHYROXINE
     Indication: HYPOTHYROIDISM
     Dosage: 100MCG  QD  ORAL
     Route: 048
     Dates: start: 20150701, end: 20151106
  2. LEVOTHYROXINE 100MCG [Suspect]
     Active Substance: LEVOTHYROXINE
     Indication: THYROIDECTOMY
     Dosage: 100MCG  QD  ORAL
     Route: 048
     Dates: start: 20150701, end: 20151106

REACTIONS (3)
  - Depression [None]
  - Fatigue [None]
  - Anxiety [None]

NARRATIVE: CASE EVENT DATE: 20151106
